FAERS Safety Report 7235644-5 (Version None)
Quarter: 2011Q1

REPORT INFORMATION
  Report Type: 
  Country: None (occurrence: None)
  Receive Date: 20110120
  Receipt Date: 20101013
  Transmission Date: 20110831
  Serious: No
  Sender: FDA-Public Use
  Company Number: US-BAYER-201022654BCC

PATIENT
  Sex: Female
  Weight: 60.455 kg

DRUGS (4)
  1. ALEVE (CAPLET) [Suspect]
     Dosage: 440 MG, QD
     Route: 048
  2. UNCODEABLE ^UNCLASSIFIABLE^ [Concomitant]
  3. BONIVA [Concomitant]
  4. BLOOD PRESSURE MEDICATION (NOS) [Concomitant]

REACTIONS (1)
  - PAIN [None]
